FAERS Safety Report 5246996-X (Version None)
Quarter: 2007Q1

REPORT INFORMATION
  Report Type: 
  Country: None (occurrence: None)
  Receive Date: 20070226
  Receipt Date: 20070219
  Transmission Date: 20070707
  Serious: Yes (Hospitalization)
  Sender: FDA-Public Use
  Company Number: JP-JPN-A200700334

PATIENT
  Age: 53 Year
  Sex: Male
  Weight: 67 kg

DRUGS (13)
  1. VALTREX [Suspect]
     Indication: HERPES ZOSTER
     Dosage: 500MG TWICE PER DAY
     Route: 048
     Dates: start: 20070124, end: 20070128
  2. ZOVIRAX [Suspect]
     Indication: HERPES ZOSTER
     Route: 042
     Dates: start: 20070129, end: 20070130
  3. FUROSEMIDE [Concomitant]
     Indication: RENAL FAILURE CHRONIC
     Route: 048
     Dates: start: 20070128
  4. ALLOPURINOL [Concomitant]
     Indication: HYPERURICAEMIA
     Route: 048
     Dates: start: 20070128
  5. GASTER [Concomitant]
     Route: 048
     Dates: start: 20070128
  6. MUCOSTA [Concomitant]
     Route: 048
     Dates: start: 20070128
  7. CALTAN [Concomitant]
     Indication: RENAL FAILURE CHRONIC
     Route: 048
     Dates: start: 20070128
  8. EXCELASE [Concomitant]
     Route: 048
     Dates: start: 20070128
  9. NITOROL [Concomitant]
     Route: 048
     Dates: start: 20070128
  10. ALOSENN [Concomitant]
     Indication: CONSTIPATION
     Route: 048
     Dates: start: 20070128
  11. PHOSBLOCK [Concomitant]
     Route: 048
     Dates: start: 20070128
  12. RISUMIC [Concomitant]
     Route: 048
     Dates: start: 20070128
  13. UNKNOWN MEDICATION [Concomitant]
     Route: 048
     Dates: start: 20070128

REACTIONS (10)
  - ASTERIXIS [None]
  - DEPRESSED LEVEL OF CONSCIOUSNESS [None]
  - DISORIENTATION [None]
  - DIZZINESS [None]
  - DYSARTHRIA [None]
  - DYSLALIA [None]
  - ENCEPHALOPATHY [None]
  - GAIT DISTURBANCE [None]
  - NO THERAPEUTIC RESPONSE [None]
  - PERSONALITY CHANGE [None]
